FAERS Safety Report 7908777-5 (Version None)
Quarter: 2011Q4

REPORT INFORMATION
  Report Type: 
  Country: None (occurrence: None)
  Receive Date: 20111111
  Receipt Date: 20111107
  Transmission Date: 20120403
  Serious: No
  Sender: FDA-Public Use
  Company Number: US-PFIZER INC-2011275311

PATIENT
  Sex: Female

DRUGS (1)
  1. PRISTIQ [Suspect]
     Indication: MENOPAUSE
     Dosage: UNK

REACTIONS (5)
  - PARAESTHESIA [None]
  - DYSPHAGIA [None]
  - WITHDRAWAL SYNDROME [None]
  - IRRITABILITY [None]
  - WRONG TECHNIQUE IN DRUG USAGE PROCESS [None]
